FAERS Safety Report 5256373-3 (Version None)
Quarter: 2007Q1

REPORT INFORMATION
  Report Type: 
  Country: None (occurrence: None)
  Receive Date: 20070306
  Receipt Date: 20070223
  Transmission Date: 20070707
  Serious: Yes (Other)
  Sender: FDA-Public Use
  Company Number: GB-GLAXOSMITHKLINE-B0460599A

PATIENT
  Age: 64 Year
  Sex: Female
  Weight: 49 kg

DRUGS (8)
  1. NIQUITIN [Suspect]
     Indication: SMOKING CESSATION THERAPY
     Route: 062
     Dates: start: 20070123, end: 20070130
  2. NIQUITIN [Suspect]
     Route: 062
     Dates: start: 20070206
  3. MAREVAN [Suspect]
     Indication: MITRAL VALVE REPLACEMENT
     Route: 048
  4. MAREVAN [Suspect]
     Route: 048
  5. ATORVASTATIN [Concomitant]
     Dosage: 80MG PER DAY
  6. BISOPROLOL [Concomitant]
     Route: 048
  7. FUROSEMIDE [Concomitant]
     Route: 048
  8. PERINDOPRIL ERBUMINE [Concomitant]
     Dosage: 2MG PER DAY

REACTIONS (2)
  - DRUG INTERACTION [None]
  - INTERNATIONAL NORMALISED RATIO INCREASED [None]
